FAERS Safety Report 13135999 (Version 2)
Quarter: 2017Q1

REPORT INFORMATION
  Report Type: Report from Study
  Country: JP (occurrence: JP)
  Receive Date: 20170120
  Receipt Date: 20170209
  Transmission Date: 20170428
  Serious: Yes (Death)
  Sender: FDA-Public Use
  Company Number: JP-BRISTOL-MYERS SQUIBB COMPANY-BMS-2017-003503

PATIENT
  Age: 58 Year
  Sex: Male

DRUGS (1)
  1. NIVOLUMAB [Suspect]
     Active Substance: NIVOLUMAB
     Indication: METASTATIC RENAL CELL CARCINOMA
     Dosage: 160 MG, QD
     Route: 041
     Dates: start: 20161227, end: 20161227

REACTIONS (1)
  - Decreased appetite [Fatal]
